FAERS Safety Report 8929237 (Version 3)
Quarter: 2013Q1

REPORT INFORMATION
  Report Type: Spontaneous
  Country: FR (occurrence: FR)
  Receive Date: 20121127
  Receipt Date: 20130110
  Transmission Date: 20140127
  Serious: Yes (Hospitalization)
  Sender: FDA-Public Use
  Company Number: FR-VERTEX PHARMACEUTICAL INC.-2012-025212

PATIENT
  Age: 50 Year
  Sex: Female
  Weight: 108.9 kg

DRUGS (9)
  1. INCIVO [Suspect]
     Indication: HEPATITIS C
     Dosage: DOSAGE FORM: TABLET
     Route: 048
     Dates: start: 20121022, end: 20121119
  2. RAMIPRIL [Interacting]
     Indication: HYPERTENSION
     Dosage: 7.5 MG, QD
     Route: 048
     Dates: start: 2008, end: 20121119
  3. PEGASYS [Concomitant]
     Indication: HEPATITIS C
     Dosage: 180 ?G, QW
     Dates: start: 20121022
  4. COPEGUS [Concomitant]
     Indication: HEPATITIS C
     Dates: start: 20121022
  5. COPEGUS [Concomitant]
     Dosage: 400MG ON MORNING AND 600 ON EVENING
  6. ENZYME INHIBITORS [Concomitant]
  7. LERCANIDIPINE [Concomitant]
     Indication: HYPERTENSION
     Dosage: 5 MG, QD
     Route: 048
     Dates: start: 2011
  8. REPAGLINIDE [Concomitant]
     Indication: DIABETES MELLITUS
     Dosage: 1 MG, BID
     Route: 048
     Dates: start: 2011
  9. JANUMET [Concomitant]
     Indication: DIABETES MELLITUS
     Dosage: DOSAGE FORM: TABLET
     Route: 048
     Dates: start: 2011

REACTIONS (3)
  - Angioedema [Not Recovered/Not Resolved]
  - Drug interaction [Unknown]
  - Vomiting [Unknown]
